FAERS Safety Report 8251906-7 (Version None)
Quarter: 2012Q2

REPORT INFORMATION
  Report Type: 
  Country: None (occurrence: None)
  Receive Date: 20120402
  Receipt Date: 20120327
  Transmission Date: 20120825
  Serious: Yes (Other)
  Sender: FDA-Public Use
  Company Number: US-PFIZER INC-2012078713

PATIENT
  Sex: Female
  Weight: 67.574 kg

DRUGS (1)
  1. NEURONTIN [Suspect]
     Indication: NEURALGIA
     Dosage: 100 MG, 1X/DAY
     Route: 048
     Dates: start: 20090701, end: 20120216

REACTIONS (20)
  - GLYCOSYLATED HAEMOGLOBIN INCREASED [None]
  - RED BLOOD CELL SEDIMENTATION RATE ABNORMAL [None]
  - OEDEMA PERIPHERAL [None]
  - PAIN IN EXTREMITY [None]
  - ANXIETY [None]
  - BODY HEIGHT DECREASED [None]
  - RED BLOOD CELL COUNT INCREASED [None]
  - DIZZINESS [None]
  - MOOD ALTERED [None]
  - BURNING SENSATION [None]
  - CARBON DIOXIDE INCREASED [None]
  - ANION GAP INCREASED [None]
  - GAIT DISTURBANCE [None]
  - PANIC ATTACK [None]
  - BLOOD CREATININE INCREASED [None]
  - BLOOD UREA INCREASED [None]
  - HAEMATOCRIT INCREASED [None]
  - MICROALBUMINURIA [None]
  - BLOOD GLUCOSE INCREASED [None]
  - RENAL DISORDER [None]
